FAERS Safety Report 10978936 (Version 2)
Quarter: 2015Q3

REPORT INFORMATION
  Report Type: Spontaneous
  Country: US (occurrence: US)
  Receive Date: 20150402
  Receipt Date: 20150828
  Transmission Date: 20151125
  Serious: Yes (Death)
  Sender: FDA-Public Use
  Company Number: US-PFIZER INC-2015109958

PATIENT
  Age: 63 Year
  Sex: Male
  Weight: 64 kg

DRUGS (2)
  1. INLYTA [Suspect]
     Active Substance: AXITINIB
     Dosage: 5 MG, 2X/DAY
     Dates: start: 201501
  2. INLYTA [Suspect]
     Active Substance: AXITINIB
     Indication: RENAL CANCER
     Dosage: 1 MG, 2X/DAY
     Dates: start: 201501

REACTIONS (5)
  - Dysphonia [Unknown]
  - Disease progression [Fatal]
  - Fatigue [Unknown]
  - Hypertension [Unknown]
  - Renal cancer [Fatal]
